FAERS Safety Report 6221121-7 (Version None)
Quarter: 2009Q2

REPORT INFORMATION
  Report Type: 
  Country: None (occurrence: None)
  Receive Date: 20090610
  Receipt Date: 20090609
  Transmission Date: 20091009
  Serious: Yes (Hospitalization)
  Sender: FDA-Public Use
  Company Number: B0578000A

PATIENT
  Age: 12 Year
  Sex: Male
  Weight: 24.1 kg

DRUGS (9)
  1. ABACAVIR [Suspect]
     Indication: HIV INFECTION
     Dosage: 150MG PER DAY
     Route: 048
     Dates: start: 20070413, end: 20070429
  2. LAMIVUDINE [Suspect]
     Indication: HIV INFECTION
     Dosage: 200MG PER DAY
     Route: 048
     Dates: start: 20070413, end: 20070429
  3. KALETRA [Suspect]
     Indication: HIV INFECTION
     Route: 048
     Dates: start: 20070413, end: 20070429
  4. SEPTRIN [Concomitant]
     Route: 065
     Dates: start: 20060901
  5. AUGMENTIN [Concomitant]
     Dosage: 2160MG PER DAY
     Route: 048
     Dates: start: 20070429, end: 20070501
  6. PHOSPHATE-SANDOZ [Concomitant]
     Indication: METABOLIC DISORDER
     Dosage: 48MMOL PER DAY
     Route: 048
     Dates: start: 20070424, end: 20070429
  7. SODIUM CHLORIDE [Concomitant]
     Indication: METABOLIC DISORDER
     Dosage: 30MMOL PER DAY
     Route: 048
     Dates: start: 20070429, end: 20070501
  8. DIFFLAM [Concomitant]
     Route: 048
     Dates: start: 20070426, end: 20070501
  9. NEVIRAPINE [Concomitant]
     Indication: HIV INFECTION
     Route: 065

REACTIONS (7)
  - DIARRHOEA [None]
  - LETHARGY [None]
  - LIVER FUNCTION TEST ABNORMAL [None]
  - PRURITUS [None]
  - PYREXIA [None]
  - RASH MACULAR [None]
  - VOMITING [None]
